FAERS Safety Report 7949067-4 (Version None)
Quarter: 2011Q4

REPORT INFORMATION
  Report Type: 
  Country: None (occurrence: None)
  Receive Date: 20111130
  Receipt Date: 20110909
  Transmission Date: 20120403
  Serious: No
  Sender: FDA-Public Use
  Company Number: US-BRISTOL-MYERS SQUIBB COMPANY-16048068

PATIENT
  Age: 72 Year
  Sex: Female

DRUGS (6)
  1. KOMBIGLYZE XR [Suspect]
     Dosage: 1DF=KOMBIGLYZE XR 2.5/1000MG
  2. LIPITOR [Concomitant]
  3. ASPIRIN [Concomitant]
  4. SYNTHROID [Concomitant]
  5. VITAMIN D [Concomitant]
  6. AVANDAMET [Concomitant]

REACTIONS (2)
  - ABDOMINAL PAIN UPPER [None]
  - HEADACHE [None]
